FAERS Safety Report 18392783 (Version 1)
Quarter: 2020Q4

REPORT INFORMATION
  Report Type: Spontaneous
  Country: IT (occurrence: IT)
  Receive Date: 20201016
  Receipt Date: 20201016
  Transmission Date: 20210114
  Serious: Yes (Hospitalization)
  Sender: FDA-Public Use
  Company Number: NVSC2020IT275461

PATIENT
  Age: 24 Year
  Sex: Female

DRUGS (1)
  1. TOLEP [Suspect]
     Active Substance: OXCARBAZEPINE
     Indication: INTENTIONAL OVERDOSE
     Dosage: 3 G (TOTAL) (ABUSO / USO IMPROPRIO)
     Route: 048
     Dates: start: 20200930, end: 20200930

REACTIONS (5)
  - Somnolence [Not Recovered/Not Resolved]
  - Headache [Not Recovered/Not Resolved]
  - Suicide attempt [Not Recovered/Not Resolved]
  - Sopor [Not Recovered/Not Resolved]
  - Intentional overdose [Not Recovered/Not Resolved]

NARRATIVE: CASE EVENT DATE: 20200930
